FAERS Safety Report 6720081-X (Version None)
Quarter: 2010Q2

REPORT INFORMATION
  Report Type: 
  Country: None (occurrence: None)
  Receive Date: 20100511
  Receipt Date: 20100507
  Transmission Date: 20101027
  Serious: Yes (Hospitalization, Other)
  Sender: FDA-Public Use
  Company Number: US-BRISTOL-MYERS SQUIBB COMPANY-15017973

PATIENT
  Age: 74 Year
  Sex: Male
  Weight: 67 kg

DRUGS (7)
  1. CISPLATIN [Suspect]
     Indication: OESOPHAGEAL ADENOCARCINOMA
     Dosage: LAST DOSE: 08MAR10; 25MAR2010 (138MG)
     Dates: start: 20100208
  2. TAXOL [Suspect]
     Indication: OESOPHAGEAL ADENOCARCINOMA
     Dosage: LAST DOSE: 08MAR10 405MG:25MAR2010 (405MG)
     Dates: start: 20100208
  3. RADIATION THERAPY [Suspect]
     Dosage: 1 DF= 45GY;LAST DOSE:12/03/2010;28 FRACTIONS
  4. CANDESARTAN [Concomitant]
  5. ESCITALOPRAM [Concomitant]
  6. EZETIMIBE/SIMVASTATIN [Concomitant]
  7. METOPROLOL TARTRATE [Concomitant]

REACTIONS (3)
  - FATIGUE [None]
  - HYPOKALAEMIA [None]
  - HYPOTENSION [None]
